FAERS Safety Report 17989113 (Version 1)
Quarter: 2020Q3

REPORT INFORMATION
  Report Type: Spontaneous
  Country: US (occurrence: US)
  Receive Date: 20200707
  Receipt Date: 20200707
  Transmission Date: 20201103
  Serious: No
  Sender: FDA-Public Use
  Company Number: US-TEVA-2020-US-1798483

PATIENT
  Sex: Male

DRUGS (17)
  1. MODAFINIL. [Concomitant]
     Active Substance: MODAFINIL
  2. GABAPENTIN. [Concomitant]
     Active Substance: GABAPENTIN
  3. LISINOPRIL. [Concomitant]
     Active Substance: LISINOPRIL
  4. COPAXONE [Suspect]
     Active Substance: GLATIRAMER ACETATE
     Indication: MULTIPLE SCLEROSIS
     Route: 058
     Dates: start: 20130712
  5. DIPHEN/ATROP [Concomitant]
     Active Substance: ATROPINE SULFATE\DIPHENOXYLATE
  6. MONTELUKAST [Concomitant]
     Active Substance: MONTELUKAST SODIUM
  7. AZELASTINE SPRAY [Concomitant]
  8. METHYLPREDNISOLONE. [Concomitant]
     Active Substance: METHYLPREDNISOLONE
  9. METOPROLOL SUCCINATE. [Concomitant]
     Active Substance: METOPROLOL SUCCINATE
  10. ATORVASTATIN [Concomitant]
     Active Substance: ATORVASTATIN
  11. FUROSEMIDE. [Concomitant]
     Active Substance: FUROSEMIDE
  12. TAMSULOSIN [Concomitant]
     Active Substance: TAMSULOSIN
  13. LATANOPROST. [Concomitant]
     Active Substance: LATANOPROST
  14. CETIRIZINE [Concomitant]
     Active Substance: CETIRIZINE HYDROCHLORIDE
  15. PREDNISONE. [Concomitant]
     Active Substance: PREDNISONE
  16. ALLOPURINOL. [Concomitant]
     Active Substance: ALLOPURINOL
  17. FAMOTIDINE. [Concomitant]
     Active Substance: FAMOTIDINE

REACTIONS (4)
  - Feeling jittery [Not Recovered/Not Resolved]
  - Asthenia [Not Recovered/Not Resolved]
  - Fatigue [Not Recovered/Not Resolved]
  - Urticaria [Not Recovered/Not Resolved]
